FAERS Safety Report 9638591 (Version 1)
Quarter: 2013Q4

REPORT INFORMATION
  Report Type: Spontaneous
  Country: US (occurrence: US)
  Receive Date: 20131022
  Receipt Date: 20131022
  Transmission Date: 20140711
  Serious: No
  Sender: FDA-Public Use
  Company Number: US-BRISTOL-MYERS SQUIBB COMPANY-19484799

PATIENT
  Age: 68 Year
  Sex: Male
  Weight: 98.86 kg

DRUGS (4)
  1. ELIQUIS [Suspect]
     Indication: ATRIAL FIBRILLATION
     Dates: start: 201304
  2. LISINOPRIL [Concomitant]
  3. DILTIAZEM HCL [Concomitant]
  4. VIAGRA [Concomitant]
     Indication: ERECTILE DYSFUNCTION

REACTIONS (3)
  - Erectile dysfunction [Unknown]
  - Arthritis [Unknown]
  - Arthralgia [Unknown]
